FAERS Safety Report 15948137 (Version 3)
Quarter: 2019Q1

REPORT INFORMATION
  Report Type: Spontaneous
  Country: NL (occurrence: NL)
  Receive Date: 20190212
  Receipt Date: 20190305
  Transmission Date: 20190417
  Serious: Yes (Hospitalization, Other)
  Sender: FDA-Public Use
  Company Number: NL-AUROBINDO-AUR-APL-2019-006406

PATIENT

DRUGS (1)
  1. LEVOFLOXACIN. [Suspect]
     Active Substance: LEVOFLOXACIN
     Indication: URINARY TRACT INFECTION
     Dosage: UNK
     Route: 065

REACTIONS (7)
  - Steatorrhoea [Unknown]
  - Crystal nephropathy [Unknown]
  - Pancreatic failure [Unknown]
  - Renal impairment [Unknown]
  - Decreased appetite [Unknown]
  - Tubulointerstitial nephritis [Unknown]
  - Hyperoxaluria [Unknown]
